FAERS Safety Report 6061693-9 (Version None)
Quarter: 2009Q1

REPORT INFORMATION
  Report Type: 
  Country: None (occurrence: None)
  Receive Date: 20090202
  Receipt Date: 20090121
  Transmission Date: 20090719
  Serious: Yes (Other)
  Sender: FDA-Public Use
  Company Number: US-PFIZER INC-2008079754

PATIENT
  Sex: Male
  Weight: 112.47 kg

DRUGS (4)
  1. DILANTIN [Suspect]
  2. PHENYTOIN [Suspect]
     Indication: EPILEPSY
  3. AMLODIPINE [Concomitant]
  4. BENAZEPRIL HYDROCHLORIDE [Concomitant]

REACTIONS (3)
  - ANTICONVULSANT DRUG LEVEL DECREASED [None]
  - CONVULSION [None]
  - TREATMENT NONCOMPLIANCE [None]
